FAERS Safety Report 16708880 (Version 1)
Quarter: 2019Q3

REPORT INFORMATION
  Report Type: Spontaneous
  Country: US (occurrence: US)
  Receive Date: 20190816
  Receipt Date: 20190816
  Transmission Date: 20191004
  Serious: Yes (Other)
  Sender: FDA-Public Use
  Company Number: US-LUPIN PHARMACEUTICALS INC.-2019-05165

PATIENT
  Age: 77 Year
  Sex: Male

DRUGS (2)
  1. TRIAMCINOLONE [Suspect]
     Active Substance: TRIAMCINOLONE
     Indication: ARTHRALGIA
     Dosage: 40 MILLIGRAM PER MILLILITRE (1 ML)
     Route: 014
  2. ROPIVACAINE. [Suspect]
     Active Substance: ROPIVACAINE HYDROCHLORIDE
     Indication: ARTHRALGIA
     Dosage: 4 MILLILITER (0.5%), PRESERVATIVE-FREE
     Route: 014

REACTIONS (1)
  - Rapidly progressive osteoarthritis [Unknown]
